FAERS Safety Report 7213705-4 (Version None)
Quarter: 2011Q1

REPORT INFORMATION
  Report Type: 
  Country: None (occurrence: None)
  Receive Date: 20110106
  Receipt Date: 20110104
  Transmission Date: 20110831
  Serious: Yes (Life-Threatening, Hospitalization)
  Sender: FDA-Public Use
  Company Number: FR-PFIZER INC-2011001458

PATIENT
  Age: 28 Year
  Sex: Female

DRUGS (6)
  1. ADVIL [Suspect]
     Indication: COUGH
     Dosage: UNK
     Route: 048
     Dates: start: 20101206, end: 20101209
  2. ADVIL [Suspect]
     Indication: CHILLS
  3. PROFENID [Suspect]
     Indication: CHILLS
  4. PROFENID [Suspect]
     Indication: COUGH
     Dosage: UNK
     Route: 054
     Dates: end: 20101209
  5. PROFENID [Suspect]
     Indication: HYPERHIDROSIS
  6. ADVIL [Suspect]
     Indication: HYPERHIDROSIS

REACTIONS (3)
  - CONDITION AGGRAVATED [None]
  - PNEUMOCOCCAL SEPSIS [None]
  - PNEUMONIA PNEUMOCOCCAL [None]
